FAERS Safety Report 16483102 (Version 1)
Quarter: 2019Q2

REPORT INFORMATION
  Report Type: Spontaneous
  Country: SE (occurrence: SE)
  Receive Date: 20190627
  Receipt Date: 20190627
  Transmission Date: 20190711
  Serious: Yes (Hospitalization)
  Sender: FDA-Public Use
  Company Number: SE-SA-2019SA167938

PATIENT
  Age: 21 Year
  Sex: Male

DRUGS (4)
  1. PROMETHAZINE HYDROCHLORIDE. [Suspect]
     Active Substance: PROMETHAZINE HYDROCHLORIDE
     Dosage: 200 MG
     Route: 048
     Dates: start: 20190324, end: 20190324
  2. PROPAVAN [Suspect]
     Active Substance: PROPIOMAZINE
     Dosage: 4 U
     Route: 048
     Dates: start: 20190324, end: 20190324
  3. MIRTAZAPINE. [Suspect]
     Active Substance: MIRTAZAPINE
     Dosage: 15 MG X 4
     Route: 048
     Dates: start: 20190324, end: 20190324
  4. MELATONIN [Suspect]
     Active Substance: MELATONIN
     Dosage: 12 U
     Route: 048
     Dates: start: 20190324, end: 20190324

REACTIONS (2)
  - Intentional self-injury [Unknown]
  - Intentional overdose [Unknown]

NARRATIVE: CASE EVENT DATE: 20190324
